FAERS Safety Report 5374574-0 (Version None)
Quarter: 2007Q2

REPORT INFORMATION
  Report Type: 
  Country: None (occurrence: None)
  Receive Date: 20070627
  Receipt Date: 20070627
  Transmission Date: 20071010
  Serious: No
  Sender: FDA-Public Use
  Company Number: None

PATIENT
  Age: 37 Year
  Sex: Male

DRUGS (1)
  1. QUININE [Suspect]
     Indication: RESTLESS LEGS SYNDROME
     Dosage: 325MG  HS
     Dates: start: 20070205, end: 20070209

REACTIONS (2)
  - CHEST PAIN [None]
  - PALPITATIONS [None]
